FAERS Safety Report 14417924 (Version 3)
Quarter: 2018Q1

REPORT INFORMATION
  Report Type: Spontaneous
  Country: FR (occurrence: FR)
  Receive Date: 20180122
  Receipt Date: 20180328
  Transmission Date: 20180509
  Serious: Yes (Life-Threatening, Other)
  Sender: FDA-Public Use
  Company Number: FR-MYLANLABS-2018M1005351

PATIENT
  Age: 78 Year
  Sex: Male
  Weight: 89 kg

DRUGS (12)
  1. EUCREAS [Concomitant]
     Active Substance: METFORMIN HYDROCHLORIDE\VILDAGLIPTIN
     Indication: PRODUCT USED FOR UNKNOWN INDICATION
     Dosage: UNK
  2. DROPERIDOL AGUETTANT [Suspect]
     Active Substance: DROPERIDOL
     Indication: ANAESTHESIA
     Dosage: 1.25 MG, QD
     Route: 042
     Dates: start: 20171207, end: 20171207
  3. ULTIVA [Suspect]
     Active Substance: REMIFENTANIL HYDROCHLORIDE
     Indication: ANAESTHESIA
     Dosage: 11 MG, QD
     Route: 042
     Dates: start: 20171207, end: 20171207
  4. PROPOFOL MYLAN 20 MG/ML, ?MULSION INJECTABLE (IV) [Suspect]
     Active Substance: PROPOFOL
     Indication: ANAESTHESIA
     Dosage: 200 MG, TOTAL
     Route: 042
     Dates: start: 20171207, end: 20171207
  5. KARDEGIC [Concomitant]
     Active Substance: ASPIRIN DL-LYSINE
     Indication: PRODUCT USED FOR UNKNOWN INDICATION
     Dosage: UNK
  6. SUFENTANIL MYLAN 50 MICROGRAMMES/ML SOLUTION INJECTABLE [Suspect]
     Active Substance: SUFENTANIL
     Indication: ANAESTHESIA
     Dosage: 40 ?G, QD
     Route: 042
     Dates: start: 20171207, end: 20171207
  7. COVERSYL [Concomitant]
     Active Substance: PERINDOPRIL
     Indication: PRODUCT USED FOR UNKNOWN INDICATION
     Dosage: UNK
  8. DEXAMETHASONE MYLAN 4 MG/1 ML, SOLUTION INJECTABLE EN AMPOULE [Suspect]
     Active Substance: DEXAMETHASONE
     Indication: PROPHYLAXIS
     Dosage: 8 MG, TOTAL
     Route: 042
     Dates: start: 20171207, end: 20171207
  9. GLICLAZIDE [Concomitant]
     Active Substance: GLICLAZIDE
     Indication: PRODUCT USED FOR UNKNOWN INDICATION
     Dosage: UNK
  10. CEFAZOLINE [Concomitant]
     Active Substance: CEFAZOLIN SODIUM
     Indication: PRODUCT USED FOR UNKNOWN INDICATION
     Dosage: UNK
  11. ESMERON [Suspect]
     Active Substance: ROCURONIUM BROMIDE
     Indication: ANAESTHESIA
     Dosage: 110 MG, QD
     Route: 042
     Dates: start: 20171207, end: 20171207
  12. KETAMINE [Suspect]
     Active Substance: KETAMINE
     Indication: ANAESTHESIA
     Dosage: 20 MG, TOTAL
     Route: 042
     Dates: start: 20171207, end: 20171207

REACTIONS (1)
  - Anaphylactic shock [Recovering/Resolving]

NARRATIVE: CASE EVENT DATE: 20171207
